FAERS Safety Report 6278021-6 (Version None)
Quarter: 2009Q3

REPORT INFORMATION
  Report Type: 
  Country: None (occurrence: None)
  Receive Date: 20090722
  Receipt Date: 20090710
  Transmission Date: 20100115
  Serious: Yes (Other)
  Sender: FDA-Public Use
  Company Number: PHEH2009US07436

PATIENT
  Sex: Female

DRUGS (1)
  1. EXJADE [Suspect]
     Indication: WALDENSTROM'S MACROGLOBULINAEMIA
     Dosage: 1000 MG, QD
     Route: 048
     Dates: start: 20090403, end: 20090708

REACTIONS (1)
  - PANCYTOPENIA [None]
